FAERS Safety Report 10358625 (Version 1)
Quarter: 2014Q3

REPORT INFORMATION
  Report Type: Spontaneous
  Country: US (occurrence: US)
  Receive Date: 20140803
  Receipt Date: 20140803
  Transmission Date: 20150326
  Serious: No
  Sender: FDA-Public Use
  Company Number: US-009507513-1407USA007078

PATIENT
  Age: 67 Year
  Sex: Male
  Weight: 86.7 kg

DRUGS (4)
  1. VICTRELIS [Suspect]
     Active Substance: BOCEPREVIR
     Indication: HEPATITIS C
     Dosage: 800 MG, TID, TOOK FOUR CAPSULES BY MOUTH EVERY EIGHT HOURS WITH FOOD
     Route: 048
     Dates: start: 20120303, end: 20120912
  2. PEGASYS [Suspect]
     Active Substance: PEGINTERFERON ALFA-2A
     Dosage: 180 MCG, QW
     Route: 058
  3. EPOETIN [Suspect]
     Active Substance: ERYTHROPOIETIN
  4. REBETOL [Suspect]
     Active Substance: RIBAVIRIN
     Indication: HEPATITIS C
     Dosage: 200 MG, QD, TOOK 1 CAPSULE BY MOUTH, TOOK WITH FOOD
     Route: 048
     Dates: start: 20120215, end: 20121012

REACTIONS (3)
  - Decreased appetite [Unknown]
  - Anaemia [Unknown]
  - Headache [Unknown]

NARRATIVE: CASE EVENT DATE: 20120425
